FAERS Safety Report 14664512 (Version 2)
Quarter: 2018Q2

REPORT INFORMATION
  Report Type: Spontaneous
  Country: US (occurrence: US)
  Receive Date: 20180321
  Receipt Date: 20180413
  Transmission Date: 20180711
  Serious: Yes (Hospitalization, Other)
  Sender: FDA-Public Use
  Company Number: US-SAOL THERAPEUTICS-2018SAO00368

PATIENT
  Age: 59 Year
  Sex: Female
  Weight: 49.89 kg

DRUGS (1)
  1. GABLOFEN [Suspect]
     Active Substance: BACLOFEN
     Dosage: 25 ?G, \DAY
     Route: 037
     Dates: start: 20180309

REACTIONS (4)
  - Oxygen saturation decreased [Unknown]
  - Respiratory arrest [Recovering/Resolving]
  - Muscle disorder [Recovering/Resolving]
  - Hypotension [Unknown]

NARRATIVE: CASE EVENT DATE: 201801
